FAERS Safety Report 17703429 (Version 2)
Quarter: 2020Q2

REPORT INFORMATION
  Report Type: Spontaneous
  Country: FR (occurrence: FR)
  Receive Date: 20200424
  Receipt Date: 20200519
  Transmission Date: 20200714
  Serious: Yes (Hospitalization, Other)
  Sender: FDA-Public Use
  Company Number: FR-AUROBINDO-AUR-APL-2020-020232

PATIENT
  Age: 51 Year
  Sex: Female
  Weight: 59 kg

DRUGS (3)
  1. IBUPROFEN. [Suspect]
     Active Substance: IBUPROFEN
     Dosage: UNK
     Route: 048
     Dates: start: 201901, end: 201901
  2. KETOPROFEN. [Suspect]
     Active Substance: KETOPROFEN
     Indication: PAIN
     Dosage: 2 DOSAGE FORM
     Route: 065
     Dates: start: 201701, end: 201701
  3. IBUPROFEN. [Suspect]
     Active Substance: IBUPROFEN
     Indication: PAIN
     Dosage: UNK
     Route: 048
     Dates: start: 201701, end: 201701

REACTIONS (2)
  - Skin infection [Recovered/Resolved]
  - Pneumococcal sepsis [Recovered/Resolved]

NARRATIVE: CASE EVENT DATE: 20170109
